FAERS Safety Report 6793966-6 (Version None)
Quarter: 2010Q2

REPORT INFORMATION
  Report Type: 
  Country: None (occurrence: None)
  Receive Date: 20100624
  Receipt Date: 20070925
  Transmission Date: 20101027
  Serious: No
  Sender: FDA-Public Use
  Company Number: US-PFIZER INC-ENC200700169

PATIENT
  Age: 80 Year
  Sex: Female
  Weight: 73.7 kg

DRUGS (28)
  1. ARGATROBAN [Suspect]
     Indication: HEPARIN-INDUCED THROMBOCYTOPENIA
     Dosage: 0.164 MCG/KG/MIN,FREQUENCY:  UNK
     Route: 042
     Dates: start: 20070918
  2. PARACETAMOL [Concomitant]
     Dates: start: 20070914
  3. ACETYLCYSTEINE [Concomitant]
     Dosage: 20 %
     Route: 055
     Dates: start: 20070917
  4. SALBUTAMOL [Concomitant]
     Dates: start: 20070907
  5. ASCORBIC ACID [Concomitant]
     Dates: start: 20070920
  6. ASCORBIC ACID [Concomitant]
     Dates: start: 20070913
  7. BRIMONIDINE [Concomitant]
     Dosage: 0.15 %
     Dates: start: 20070905
  8. DARBEPOETIN ALFA [Concomitant]
     Dates: start: 20070908
  9. DORZOLAMIDE [Concomitant]
     Dosage: 2 %
     Dates: start: 20070905
  10. FERROUS SULFATE TAB [Concomitant]
     Dates: start: 20070915
  11. FOLIC ACID [Concomitant]
     Dates: start: 20070914
  12. INSULIN GLARGINE [Concomitant]
     Dates: start: 20070917
  13. IPRATROPIUM [Concomitant]
     Dosage: 0.02 %
     Route: 055
     Dates: start: 20070907
  14. LANSOPRAZOLE [Concomitant]
     Dates: start: 20070924
  15. LATANOPROST [Concomitant]
     Dates: start: 20070905
  16. LEVOTHYROXINE [Concomitant]
     Dates: start: 20070914
  17. MEGESTROL ACETATE [Concomitant]
     Dates: start: 20070921
  18. METHOCARBAMOL [Concomitant]
     Dates: start: 20070928
  19. MONTELUKAST [Concomitant]
     Dates: start: 20070917
  20. FOLIC ACID, VITAMINS NOS [Concomitant]
     Dates: start: 20070913
  21. NYSTATIN [Concomitant]
     Dates: start: 20070905
  22. PILOCARPINE HYDROCHLORIDE [Concomitant]
     Dosage: 1 %
     Dates: start: 20070905
  23. SERTRALINE HCL [Concomitant]
     Dates: start: 20070917
  24. TIMOLOL MALEATE [Concomitant]
     Dosage: 0.5 %
     Dates: start: 20070905
  25. MYROXYLON BALSAMUM VAR. PEREIRAE BALSAM, RICINUS COMMUNIS OIL, TRYPSIN [Concomitant]
     Dates: start: 20070917
  26. INSULIN [Concomitant]
     Dates: start: 20070905
  27. VASOPRESSIN [Concomitant]
     Dates: start: 20070807
  28. WARFARIN SODIUM [Concomitant]
     Dates: start: 20071002, end: 20071003

REACTIONS (1)
  - UNEVALUABLE EVENT [None]
